FAERS Safety Report 21180261 (Version 3)
Quarter: 2022Q3

REPORT INFORMATION
  Report Type: Spontaneous
  Country: US (occurrence: US)
  Receive Date: 20220806
  Receipt Date: 20220914
  Transmission Date: 20221026
  Serious: No
  Sender: FDA-Public Use
  Company Number: US-UNITED THERAPEUTICS-UNT-2022-017501

PATIENT
  Sex: Female
  Weight: 68.027 kg

DRUGS (5)
  1. TYVASO [Suspect]
     Active Substance: TREPROSTINIL
     Indication: Pulmonary arterial hypertension
     Dosage: UNK
     Dates: start: 20220720
  2. TYVASO [Suspect]
     Active Substance: TREPROSTINIL
     Dosage: 18 ?G, QID
     Dates: start: 2022, end: 20220802
  3. TYVASO [Suspect]
     Active Substance: TREPROSTINIL
     Dosage: 36 ?G, QID
     Dates: start: 20220802
  4. TYVASO [Suspect]
     Active Substance: TREPROSTINIL
     Dosage: UNK
     Dates: start: 2022
  5. ADEMPAS [Concomitant]
     Active Substance: RIOCIGUAT
     Indication: Product used for unknown indication
     Dosage: UNK
     Route: 065

REACTIONS (9)
  - Abdominal pain upper [Unknown]
  - Headache [Recovering/Resolving]
  - Cough [Unknown]
  - Nausea [Unknown]
  - Decreased appetite [Unknown]
  - Dyspnoea [Unknown]
  - Abdominal distension [Unknown]
  - Oxygen saturation decreased [Unknown]
  - Illness [Unknown]

NARRATIVE: CASE EVENT DATE: 20220101
